FAERS Safety Report 8619644 (Version 2)
Quarter: 2014Q1

REPORT INFORMATION
  Report Type: Spontaneous
  Country: US (occurrence: None)
  Receive Date: 20120323
  Receipt Date: 20130305
  Transmission Date: 20141002
  Serious: Yes (Other)
  Sender: FDA-Public Use
  Company Number: 163-21880-11070376

PATIENT
  Age: 71 Year
  Sex: Female

DRUGS (1)
  1. REVLIMID [Suspect]
     Indication: PLASMA CELL MYELOMA
     Route: 048
     Dates: start: 200902

REACTIONS (5)
  - Pancytopenia [None]
  - Leukopenia [None]
  - Plasma cell myeloma [None]
  - Neoplasm progression [None]
  - Plasma cell myeloma [None]
